FAERS Safety Report 25401561 (Version 2)
Quarter: 2025Q4

REPORT INFORMATION
  Report Type: Report from Study
  Country: EU (occurrence: EU)
  Receive Date: 20250605
  Receipt Date: 20251120
  Transmission Date: 20260117
  Serious: Yes (Other)
  Sender: PFIZER
  Company Number: EU-GSK-FR2025GSK047523

PATIENT
  Age: 78 Year
  Sex: Female

DRUGS (3)
  1. CARBOPLATIN [Suspect]
     Active Substance: CARBOPLATIN
     Indication: Endometrial cancer
     Dosage: 2 AUC WEEKLY (DOSE ADJUSTMENT SINCE INITIATION)
     Route: 042
     Dates: start: 20250106, end: 20250731
  2. PACLITAXEL [Suspect]
     Active Substance: PACLITAXEL
     Indication: Endometrial cancer
     Dosage: 60 MG/M2 WEEKLY (DOSE ADJUSTMENT SINCE INITIATION)
     Route: 042
     Dates: start: 20250106, end: 20250731
  3. DOSTARLIMAB [Suspect]
     Active Substance: DOSTARLIMAB
     Indication: Endometrial cancer
     Dosage: 500 MG, Q3W
     Route: 042
     Dates: start: 20250106, end: 20250731

REACTIONS (5)
  - Adrenal insufficiency [Unknown]
  - Endometrial cancer [Unknown]
  - Malignant neoplasm progression [Unknown]
  - Asthenia [Unknown]
  - Incorrect dose administered [Unknown]

NARRATIVE: CASE EVENT DATE: 20250201
